FAERS Safety Report 24820747 (Version 1)
Quarter: 2025Q1

REPORT INFORMATION
  Report Type: Spontaneous
  Country: US (occurrence: US)
  Receive Date: 20250108
  Receipt Date: 20250108
  Transmission Date: 20250409
  Serious: No
  Sender: SANOFI AVENTIS
  Company Number: US-SA-2025SA004098

PATIENT
  Sex: Male

DRUGS (14)
  1. DUPIXENT [Suspect]
     Active Substance: DUPILUMAB
     Dosage: 300 MG, QW
     Route: 058
  2. DEXAMETHASONE PHOSPHATE [Concomitant]
     Active Substance: DEXAMETHASONE PHOSPHATE
  3. DIPRIVAN [Concomitant]
     Active Substance: PROPOFOL
  4. FENTANYL CIT [Concomitant]
  5. HYDROMORPHONE [Concomitant]
     Active Substance: HYDROMORPHONE
  6. ISOVUE 370 [Concomitant]
     Active Substance: IOPAMIDOL
  7. LACTATED RINGERS SOLUTION [Concomitant]
     Active Substance: CALCIUM CHLORIDE\POTASSIUM CHLORIDE\SODIUM CHLORIDE\SODIUM LACTATE
  8. LIDOCAINE [Concomitant]
     Active Substance: LIDOCAINE
  9. MEPERIDINE [Concomitant]
     Active Substance: MEPERIDINE
  10. METRONIDAZOLE [Concomitant]
     Active Substance: METRONIDAZOLE
  11. MIDAZOLAM [Concomitant]
     Active Substance: MIDAZOLAM
  12. MORPHINE SULFATE [Concomitant]
     Active Substance: MORPHINE SULFATE
  13. ONDANSETRON [Concomitant]
     Active Substance: ONDANSETRON
  14. SODIUM CHLORIDE [Concomitant]
     Active Substance: SODIUM CHLORIDE

REACTIONS (1)
  - Impaired quality of life [Unknown]
